FAERS Safety Report 16684131 (Version 1)
Quarter: 2019Q3

REPORT INFORMATION
  Report Type: Spontaneous
  Country: DO (occurrence: DO)
  Receive Date: 20190808
  Receipt Date: 20190808
  Transmission Date: 20191004
  Serious: Yes (Other)
  Sender: FDA-Public Use
  Company Number: DO-BAYER-2019-144120

PATIENT
  Age: 74 Year
  Sex: Male

DRUGS (2)
  1. STIVARGA [Suspect]
     Active Substance: REGORAFENIB
     Indication: ADENOCARCINOMA
     Dosage: UNK
     Dates: start: 201902
  2. STIVARGA [Suspect]
     Active Substance: REGORAFENIB
     Indication: METASTASES TO LYMPH NODES

REACTIONS (8)
  - Gait disturbance [None]
  - Diarrhoea [None]
  - Back pain [None]
  - General physical health deterioration [None]
  - Palmar-plantar erythrodysaesthesia syndrome [None]
  - Adenocarcinoma [None]
  - Metastases to bone [None]
  - Decreased appetite [None]

NARRATIVE: CASE EVENT DATE: 2019
